FAERS Safety Report 4457674-9 (Version None)
Quarter: 2004Q3

REPORT INFORMATION
  Report Type: 
  Country: None (occurrence: None)
  Receive Date: 20040922
  Receipt Date: 20040903
  Transmission Date: 20050211
  Serious: Yes (Life-Threatening, Hospitalization)
  Sender: FDA-Public Use
  Company Number: DE_021009772

PATIENT
  Age: 60 Year
  Sex: Female
  Weight: 57 kg

DRUGS (11)
  1. GEMZAR [Suspect]
     Indication: LUNG ADENOCARCINOMA
     Dosage: 1250 MG/M2/PER INFUSION
     Dates: start: 20020927
  2. GEMZAR [Suspect]
     Indication: NON-SMALL CELL LUNG CANCER
     Dosage: 1250 MG/M2/PER INFUSION
     Dates: start: 20020927
  3. ISIS 3521 (LY900003) [Suspect]
     Indication: LUNG ADENOCARCINOMA
     Dosage: 125 MG/PER INFUSION DAY
     Dates: start: 20020927
  4. ISIS 3521 (LY900003) [Suspect]
     Indication: NON-SMALL CELL LUNG CANCER
     Dosage: 125 MG/PER INFUSION DAY
     Dates: start: 20020927
  5. CISPLATIN [Suspect]
     Indication: LUNG ADENOCARCINOMA
     Dosage: 80 MG/M2/PER INFUSION
     Dates: start: 20020927, end: 20020928
  6. CISPLATIN [Suspect]
     Indication: NON-SMALL CELL LUNG CANCER
     Dosage: 80 MG/M2/PER INFUSION
     Dates: start: 20020927, end: 20020928
  7. COSAAR (LOSARTAN POTASSIUM) [Concomitant]
  8. ACETAMINOPHEN [Concomitant]
  9. TRAMADOL HCL [Concomitant]
  10. NAVOBAN (TROPISETRON HYDROCHLORIDE) [Concomitant]
  11. DEXAMETHASONE [Concomitant]

REACTIONS (4)
  - ACUTE CORONARY SYNDROME [None]
  - DYSPNOEA [None]
  - PNEUMONIA [None]
  - TROPONIN T INCREASED [None]
